FAERS Safety Report 7047100-8 (Version None)
Quarter: 2010Q4

REPORT INFORMATION
  Report Type: 
  Country: None (occurrence: None)
  Receive Date: 20101015
  Receipt Date: 20101006
  Transmission Date: 20110411
  Serious: Yes (Hospitalization)
  Sender: FDA-Public Use
  Company Number: FR-ABBOTT-10P-056-0676661-00

PATIENT
  Sex: Female

DRUGS (3)
  1. HUMIRA [Suspect]
     Indication: PSORIASIS
     Dosage: WEEK 1
     Route: 058
     Dates: start: 20091111, end: 20091111
  2. HUMIRA [Suspect]
     Dosage: WEEK 2
  3. HUMIRA [Suspect]
     Dates: end: 20100307

REACTIONS (2)
  - ALOPECIA [None]
  - PSORIASIS [None]
